FAERS Safety Report 21850559 (Version 1)
Quarter: 2023Q1

REPORT INFORMATION
  Report Type: Spontaneous
  Country: CA (occurrence: CA)
  Receive Date: 20230111
  Receipt Date: 20230111
  Transmission Date: 20230418
  Serious: Yes (Other)
  Sender: FDA-Public Use
  Company Number: CA-PFIZER INC-202300012467

PATIENT
  Age: 77 Year
  Sex: Male

DRUGS (1)
  1. DEPO-MEDROL [Suspect]
     Active Substance: METHYLPREDNISOLONE ACETATE
     Dosage: 1 %
     Route: 008

REACTIONS (7)
  - Hypokinesia [Unknown]
  - Hypotension [Unknown]
  - Malaise [Unknown]
  - Muscular weakness [Unknown]
  - Pallor [Unknown]
  - Sensory loss [Unknown]
  - Off label use [Unknown]
